FAERS Safety Report 10030957 (Version 2)
Quarter: 2014Q1

REPORT INFORMATION
  Report Type: Spontaneous
  Country: CA (occurrence: CA)
  Receive Date: 20140323
  Receipt Date: 20140323
  Transmission Date: 20141002
  Serious: Yes (Other)
  Sender: FDA-Public Use
  Company Number: CA-JNJFOC-20140307242

PATIENT
  Sex: Male

DRUGS (1)
  1. NICODERM STEP 1 CLEAR [Suspect]
     Indication: SMOKING CESSATION THERAPY
     Route: 065

REACTIONS (1)
  - Myocardial infarction [Unknown]
